FAERS Safety Report 15242142 (Version 1)
Quarter: 2018Q3

REPORT INFORMATION
  Report Type: Spontaneous
  Country: US (occurrence: US)
  Receive Date: 20180806
  Receipt Date: 20180806
  Transmission Date: 20181010
  Serious: No
  Sender: FDA-Public Use
  Company Number: US-BRISTOL-MYERS SQUIBB COMPANY-BMS-2018-071057

PATIENT
  Sex: Male

DRUGS (1)
  1. GLUCOPHAGE [Suspect]
     Active Substance: METFORMIN HYDROCHLORIDE
     Indication: HYPERTRIGLYCERIDAEMIA
     Dosage: 500 MG, UNK
     Route: 048
     Dates: start: 199903, end: 199903

REACTIONS (3)
  - Hyperglycaemia [Unknown]
  - Blood triglycerides increased [Unknown]
  - Product use in unapproved indication [Unknown]
